FAERS Safety Report 9300815 (Version 1)
Quarter: 2013Q2

REPORT INFORMATION
  Report Type: Report from Study
  Country: CA (occurrence: CA)
  Receive Date: 20130521
  Receipt Date: 20130521
  Transmission Date: 20140414
  Serious: Yes (Other)
  Sender: FDA-Public Use
  Company Number: CA-PFIZER INC-2013152215

PATIENT
  Age: 67 Year
  Sex: Male

DRUGS (1)
  1. MORPHINE SULFATE [Suspect]
     Indication: SURGERY
     Dosage: UNK
     Route: 065
     Dates: start: 1984, end: 1985

REACTIONS (3)
  - Delusional perception [Unknown]
  - Tremor [Unknown]
  - Malaise [Unknown]
